FAERS Safety Report 9685660 (Version 1)
Quarter: 2013Q4

REPORT INFORMATION
  Report Type: Spontaneous
  Country: US (occurrence: None)
  Receive Date: 20131112
  Receipt Date: 20131112
  Transmission Date: 20140711
  Serious: No
  Sender: FDA-Public Use
  Company Number: None

PATIENT
  Age: 69 Year
  Sex: Female

DRUGS (1)
  1. CYPROHEPATADINE [Suspect]
     Dates: start: 20110627, end: 201109

REACTIONS (4)
  - Drug-induced liver injury [None]
  - Cholelithiasis [None]
  - Drug intolerance [None]
  - Sedation [None]
